FAERS Safety Report 8764786 (Version 1)
Quarter: 2012Q4

REPORT INFORMATION
  Report Type: 
  Country: CN (occurrence: CN)
  Receive Date: 20120831
  Receipt Date: 20120831
  Transmission Date: 20130627
  Serious: Yes (Other)
  Sender: FDA-Public Use
  Company Number: CN-ROCHE-1110846

PATIENT
  Age: 61 Year
  Sex: Female
  Weight: 45 kg

DRUGS (2)
  1. ROCEPHIN [Suspect]
     Indication: INFECTION
     Route: 041
     Dates: start: 20110220, end: 20110220
  2. NORMAL SALINE [Concomitant]
     Dosage: 0.9 %
     Dates: start: 20110220

REACTIONS (3)
  - Obstructive airways disorder [Unknown]
  - Emphysema [Unknown]
  - Anaphylactoid reaction [Recovered/Resolved]
